FAERS Safety Report 8055601-9 (Version None)
Quarter: 2011Q4

REPORT INFORMATION
  Report Type: 
  Country: None (occurrence: None)
  Receive Date: 20111219
  Receipt Date: 20110228
  Transmission Date: 20120403
  Serious: Yes (Hospitalization, Disabling)
  Sender: FDA-Public Use
  Company Number: WAES 1102USA03598

PATIENT
  Age: 63 Year
  Sex: Female
  Weight: 120.6568 kg

DRUGS (2)
  1. JANUVIA [Suspect]
     Indication: TYPE 2 DIABETES MELLITUS
     Dosage: 50 MG/BID/PO
     Route: 048
     Dates: start: 20090101, end: 20100813
  2. JANUVIA [Suspect]
     Indication: TYPE 2 DIABETES MELLITUS
     Dosage: 50 MG/BID/PO
     Route: 048
     Dates: end: 20110101

REACTIONS (1)
  - PANCREATITIS [None]
